FAERS Safety Report 8438230 (Version 4)
Quarter: 2012Q4

REPORT INFORMATION
  Report Type: 
  Country: US (occurrence: US)
  Receive Date: 20120302
  Receipt Date: 20121001
  Transmission Date: 20130627
  Serious: Yes (Hospitalization)
  Sender: FDA-Public Use
  Company Number: US-GLAXOSMITHKLINE-A0932389A

PATIENT
  Age: 75 None
  Sex: Male

DRUGS (1)
  1. AVANDIA [Suspect]
     Indication: DIABETES MELLITUS
     Dosage: 4MG Twice per day
     Route: 048
     Dates: start: 20010423, end: 201102

REACTIONS (8)
  - Myocardial infarction [Not Recovered/Not Resolved]
  - Cerebrovascular accident [Unknown]
  - Surgery [Unknown]
  - Muscular weakness [Unknown]
  - Dizziness [Unknown]
  - Fall [Unknown]
  - Stent placement [Unknown]
  - Peripheral arterial occlusive disease [Unknown]
